FAERS Safety Report 11126432 (Version 6)
Quarter: 2016Q1

REPORT INFORMATION
  Report Type: Report from Study
  Country: JP (occurrence: JP)
  Receive Date: 20150520
  Receipt Date: 20160209
  Transmission Date: 20160525
  Serious: No
  Sender: FDA-Public Use
  Company Number: JP-JNJFOC-20150507860

PATIENT
  Age: 51 Year
  Sex: Male

DRUGS (8)
  1. TRAMCET [Suspect]
     Active Substance: ACETAMINOPHEN\TRAMADOL
     Indication: PAIN
     Route: 048
  2. TRAMCET [Suspect]
     Active Substance: ACETAMINOPHEN\TRAMADOL
     Indication: PAIN
     Route: 048
  3. TRAMCET [Suspect]
     Active Substance: ACETAMINOPHEN\TRAMADOL
     Indication: PAIN
     Route: 048
  4. ONEDURO [Suspect]
     Active Substance: FENTANYL
     Indication: PAIN
     Route: 062
     Dates: start: 20141205, end: 20141210
  5. TRAMCET [Suspect]
     Active Substance: ACETAMINOPHEN\TRAMADOL
     Indication: PAIN
     Route: 048
     Dates: end: 20150123
  6. ONEDURO [Suspect]
     Active Substance: FENTANYL
     Indication: PAIN
     Route: 062
     Dates: start: 20141119, end: 20141120
  7. ONEDURO [Suspect]
     Active Substance: FENTANYL
     Indication: PAIN
     Route: 062
     Dates: start: 20141106, end: 20141118
  8. ONEDURO [Suspect]
     Active Substance: FENTANYL
     Indication: PAIN
     Route: 062
     Dates: start: 20141217, end: 20151115

REACTIONS (6)
  - Constipation [Recovered/Resolved]
  - Pruritus generalised [Recovered/Resolved]
  - Dysuria [Recovered/Resolved]
  - Anger [Recovered/Resolved]
  - Insomnia [Recovered/Resolved]
  - Inappropriate schedule of drug administration [Unknown]

NARRATIVE: CASE EVENT DATE: 20141108
